FAERS Safety Report 5924208-9 (Version None)
Quarter: 2008Q3

REPORT INFORMATION
  Report Type: 
  Country: None (occurrence: None)
  Receive Date: 20080909
  Receipt Date: 20080208
  Transmission Date: 20090109
  Serious: Yes (Hospitalization)
  Sender: FDA-Public Use
  Company Number: 163-20785-08020574

PATIENT
  Age: 55 Year
  Sex: Female
  Weight: 105.6 kg

DRUGS (22)
  1. THALOMID [Suspect]
     Indication: MULTIPLE MYELOMA
     Dosage: 200 MG, ORAL ; 100 MG ,ORAL
     Route: 048
     Dates: start: 20050614
  2. DEXAMETHASONE TAB [Suspect]
     Indication: MULTIPLE MYELOMA
     Dosage: 40 MG ; 20 MG, DAYS 1-4 EVERY 28 DAYS
     Dates: end: 20080117
  3. DEXAMETHASONE TAB [Suspect]
     Indication: MULTIPLE MYELOMA
     Dosage: 40 MG ; 20 MG, DAYS 1-4 EVERY 28 DAYS
     Dates: start: 20050614
  4. VELCADE [Suspect]
     Indication: MULTIPLE MYELOMA
     Dates: end: 20070614
  5. VELCADE [Suspect]
     Indication: MULTIPLE MYELOMA
     Dates: start: 20050611
  6. CISPLATIN [Suspect]
     Indication: MULTIPLE MYELOMA
     Dates: end: 20060323
  7. CISPLATIN [Suspect]
     Indication: MULTIPLE MYELOMA
     Dates: start: 20050614
  8. ADRIAMYCIN PFS [Suspect]
     Indication: MULTIPLE MYELOMA
     Dates: end: 20060323
  9. ADRIAMYCIN PFS [Suspect]
     Indication: MULTIPLE MYELOMA
     Dates: start: 20050614
  10. CYCLOPHOSPHAMIDE [Suspect]
     Indication: MULTIPLE MYELOMA
     Dates: end: 20060323
  11. CYCLOPHOSPHAMIDE [Suspect]
     Indication: MULTIPLE MYELOMA
     Dates: start: 20050614
  12. ETOPOSIDE [Suspect]
     Indication: MULTIPLE MYELOMA
     Dates: end: 20060323
  13. ETOPOSIDE [Suspect]
     Indication: MULTIPLE MYELOMA
     Dates: start: 20050614
  14. MELPHALAN (MELPHALAN) [Suspect]
     Indication: MULTIPLE MYELOMA
     Dates: end: 20051024
  15. MELPHALAN (MELPHALAN) [Suspect]
     Indication: MULTIPLE MYELOMA
     Dates: start: 20050822
  16. ACYCLOVIR (ACICLOVIR) (TABLETS) [Concomitant]
  17. PROCRIT (ERYTHROPOIETIN) (SOLUTION) [Concomitant]
  18. DOCUSATE SODIUM (DOCUSATE SODIUM) (CAPSULES) [Concomitant]
  19. RANITIDINE HCL (RANITIDINE HYDROCHLORIDE) (CAPSULES) [Concomitant]
  20. CLOTRIMAZOLE (CLOTRIMAZOLE) (TROCHE) [Concomitant]
  21. LEVAQUIN [Concomitant]
  22. CELEBREX [Concomitant]

REACTIONS (1)
  - PNEUMONIA [None]
